FAERS Safety Report 8822868 (Version 1)
Quarter: 2012Q4

REPORT INFORMATION
  Report Type: 
  Country: US (occurrence: US)
  Receive Date: 20121003
  Receipt Date: 20121003
  Transmission Date: 20130627
  Serious: Yes (Hospitalization)
  Sender: FDA-Public Use
  Company Number: US-B.I. PHARMACEUTICALS,INC./RIDGEFIELD-2012-BP-23550BP

PATIENT
  Sex: Female

DRUGS (2)
  1. PRADAXA [Suspect]
     Indication: CEREBROVASCULAR ACCIDENT PROPHYLAXIS
     Route: 048
     Dates: end: 20120925
  2. PRADAXA [Suspect]
     Indication: ATRIAL FIBRILLATION

REACTIONS (2)
  - Syncope [Unknown]
  - Upper gastrointestinal haemorrhage [Unknown]
